FAERS Safety Report 8378672-9 (Version None)
Quarter: 2012Q2

REPORT INFORMATION
  Report Type: 
  Country: None (occurrence: None)
  Receive Date: 20120522
  Receipt Date: 20120518
  Transmission Date: 20120825
  Serious: Yes (Death, Other)
  Sender: FDA-Public Use
  Company Number: PHHY2012US042883

PATIENT
  Age: 65 Year
  Sex: Male

DRUGS (3)
  1. WARFARIN SODIUM [Suspect]
     Indication: PORTAL VEIN THROMBOSIS
  2. HYDROXYUREA [Concomitant]
  3. ECULIZUMAB [Concomitant]

REACTIONS (6)
  - HEPATIC FAILURE [None]
  - CONCOMITANT DISEASE PROGRESSION [None]
  - HEPATIC VEIN OCCLUSION [None]
  - MUSCLE HAEMORRHAGE [None]
  - PAROXYSMAL NOCTURNAL HAEMOGLOBINURIA [None]
  - BUDD-CHIARI SYNDROME [None]
